FAERS Safety Report 19082317 (Version 2)
Quarter: 2021Q2

REPORT INFORMATION
  Report Type: Spontaneous
  Country: ES (occurrence: ES)
  Receive Date: 20210401
  Receipt Date: 20210505
  Transmission Date: 20210717
  Serious: Yes (Other)
  Sender: FDA-Public Use
  Company Number: ES-ROCHE-2799316

PATIENT
  Age: 76 Year
  Sex: Male

DRUGS (25)
  1. RITUXIMAB. [Suspect]
     Active Substance: RITUXIMAB
     Indication: B-CELL LYMPHOMA
     Dosage: OTHER
     Route: 058
  2. GEMCITABINE. [Suspect]
     Active Substance: GEMCITABINE
     Indication: B-CELL LYMPHOMA
     Route: 042
     Dates: start: 20201112, end: 20210127
  3. LIXIANA [Concomitant]
     Active Substance: EDOXABAN TOSYLATE
  4. VOLUTSA [Concomitant]
     Active Substance: SOLIFENACIN\TAMSULOSIN
  5. OMEPRAZOLE. [Concomitant]
     Active Substance: OMEPRAZOLE
  6. DOXORUBICIN [Suspect]
     Active Substance: DOXORUBICIN
     Indication: B-CELL LYMPHOMA
     Route: 042
     Dates: start: 20201112, end: 20210127
  7. VINCRISTINE [Suspect]
     Active Substance: VINCRISTINE
     Indication: B-CELL LYMPHOMA
     Route: 042
     Dates: start: 20190814, end: 20191115
  8. ACYCLOVIR. [Concomitant]
     Active Substance: ACYCLOVIR
  9. PREDNISONE. [Suspect]
     Active Substance: PREDNISONE
     Indication: B-CELL LYMPHOMA
     Route: 042
     Dates: start: 20190814, end: 20191115
  10. BENDAMUSTINE [Suspect]
     Active Substance: BENDAMUSTINE
     Indication: B-CELL LYMPHOMA
     Route: 042
     Dates: start: 20210414
  11. RITUXIMAB. [Suspect]
     Active Substance: RITUXIMAB
     Route: 042
     Dates: start: 20201112, end: 20210127
  12. OXALIPLATIN. [Suspect]
     Active Substance: OXALIPLATIN
     Indication: B-CELL LYMPHOMA
     Route: 042
     Dates: start: 20201112, end: 20210127
  13. RITUXIMAB. [Suspect]
     Active Substance: RITUXIMAB
     Route: 042
     Dates: start: 20210413
  14. DEXAMETHASONE. [Suspect]
     Active Substance: DEXAMETHASONE
     Indication: B-CELL LYMPHOMA
     Route: 065
     Dates: start: 20201112, end: 20210127
  15. METFORMIN [Concomitant]
     Active Substance: METFORMIN HYDROCHLORIDE
  16. POLATUZUMAB VEDOTIN. [Suspect]
     Active Substance: POLATUZUMAB VEDOTIN
     Indication: B-CELL LYMPHOMA
     Route: 042
     Dates: start: 20210413
  17. CYCLOPHOSPHAMIDE. [Suspect]
     Active Substance: CYCLOPHOSPHAMIDE
     Dosage: OTHER
     Route: 058
  18. PREDNISONE. [Suspect]
     Active Substance: PREDNISONE
     Dosage: OTHER
     Route: 058
  19. OXALIPLATIN. [Suspect]
     Active Substance: OXALIPLATIN
     Route: 058
  20. RITUXIMAB. [Suspect]
     Active Substance: RITUXIMAB
     Indication: B-CELL LYMPHOMA
     Route: 042
     Dates: start: 20190814, end: 20191115
  21. CYCLOPHOSPHAMIDE. [Suspect]
     Active Substance: CYCLOPHOSPHAMIDE
     Indication: B-CELL LYMPHOMA
     Route: 042
     Dates: start: 20190814, end: 20191115
  22. GEMCITABINE. [Suspect]
     Active Substance: GEMCITABINE
     Dosage: OTHER
     Route: 058
  23. BISOPROLOL [Concomitant]
     Active Substance: BISOPROLOL
  24. PERMIXON [Concomitant]
     Active Substance: HERBALS\SAW PALMETTO
  25. VALSARTAN/HYDROCHLOROTHIAZIDE [Concomitant]
     Active Substance: HYDROCHLOROTHIAZIDE\VALSARTAN

REACTIONS (3)
  - Off label use [Unknown]
  - Pneumonia bacterial [Unknown]
  - Prostate cancer [Unknown]

NARRATIVE: CASE EVENT DATE: 20191119
